FAERS Safety Report 5818283-X (Version None)
Quarter: 2008Q3

REPORT INFORMATION
  Report Type: 
  Country: None (occurrence: None)
  Receive Date: 20080716
  Receipt Date: 20080703
  Transmission Date: 20090109
  Serious: Yes (Hospitalization)
  Sender: FDA-Public Use
  Company Number: 2008BI016974

PATIENT
  Sex: Male

DRUGS (1)
  1. AVONEX [Suspect]
     Indication: MULTIPLE SCLEROSIS RELAPSE
     Dosage: 30 UG;QW;IM
     Route: 030
     Dates: start: 20080605

REACTIONS (1)
  - CIRCULATORY COLLAPSE [None]
